FAERS Safety Report 4873995-X (Version None)
Quarter: 2006Q1

REPORT INFORMATION
  Report Type: 
  Country: None (occurrence: None)
  Receive Date: 20060104
  Receipt Date: 20051222
  Transmission Date: 20060701
  Serious: Yes (Death)
  Sender: FDA-Public Use
  Company Number: MC200501205

PATIENT
  Age: 78 Year
  Sex: Female

DRUGS (1)
  1. ANGIOMAX [Suspect]
     Dosage: SEE IMAGE
     Route: 042
     Dates: start: 20051220, end: 20051220

REACTIONS (3)
  - CARDIAC ARREST [None]
  - CORONARY ARTERY THROMBOSIS [None]
  - MEDICATION ERROR [None]
